FAERS Safety Report 5632120-8 (Version None)
Quarter: 2008Q1

REPORT INFORMATION
  Report Type: 
  Country: None (occurrence: None)
  Receive Date: 20080220
  Receipt Date: 20080211
  Transmission Date: 20080703
  Serious: Yes (Other)
  Sender: FDA-Public Use
  Company Number: DE-MERCK-0802DEU00025

PATIENT
  Age: 54 Year
  Sex: Female

DRUGS (5)
  1. FOSAMAX [Suspect]
     Route: 048
     Dates: start: 20020101, end: 20050101
  2. BUDESONIDE AND FORMOTEROL FUMARATE [Concomitant]
  3. LEVOTHYROXINE SODIUM [Concomitant]
     Route: 048
  4. BLACK COHOSH [Concomitant]
     Route: 048
  5. CALCIUM CITRATE AND CHOLECALCIFEROL [Concomitant]
     Route: 048

REACTIONS (3)
  - APHASIA [None]
  - DYSPHONIA [None]
  - GASTROOESOPHAGEAL REFLUX DISEASE [None]
